FAERS Safety Report 6120809-6 (Version None)
Quarter: 2009Q1

REPORT INFORMATION
  Report Type: 
  Country: None (occurrence: None)
  Receive Date: 20090313
  Receipt Date: 20090112
  Transmission Date: 20090719
  Serious: Yes (Other)
  Sender: FDA-Public Use
  Company Number: 08-538

PATIENT
  Age: 57 Year
  Sex: Female
  Weight: 86.1834 kg

DRUGS (4)
  1. ALEVE [Suspect]
     Indication: HEADACHE
     Dosage: 440 MG, DAILY, ORAL
     Route: 048
     Dates: start: 20081003
  2. ALEVE [Suspect]
     Indication: MUSCULOSKELETAL PAIN
     Dosage: 440 MG, DAILY, ORAL
     Route: 048
     Dates: start: 20081003
  3. ALEVE [Suspect]
     Indication: NECK PAIN
     Dosage: 440 MG, DAILY, ORAL
     Route: 048
     Dates: start: 20081003
  4. BENADRYL [Concomitant]

REACTIONS (1)
  - ANAPHYLACTIC REACTION [None]
